FAERS Safety Report 8245134-9 (Version None)
Quarter: 2012Q1

REPORT INFORMATION
  Report Type: 
  Country: None (occurrence: None)
  Receive Date: 20120329
  Receipt Date: 20120323
  Transmission Date: 20120608
  Serious: Yes (Disabling)
  Sender: FDA-Public Use
  Company Number: US-PFIZER INC-2012051145

PATIENT

DRUGS (1)
  1. NEURONTIN [Suspect]
     Dosage: 300 MG, 3X/DAY

REACTIONS (4)
  - INFECTION [None]
  - CHRONIC OBSTRUCTIVE PULMONARY DISEASE [None]
  - PAIN [None]
  - FATIGUE [None]
